FAERS Safety Report 12518944 (Version 2)
Quarter: 2016Q3

REPORT INFORMATION
  Report Type: Spontaneous
  Country: BR (occurrence: BR)
  Receive Date: 20160630
  Receipt Date: 20160713
  Transmission Date: 20161109
  Serious: Yes (Other)
  Sender: FDA-Public Use
  Company Number: PHHY2016BR087829

PATIENT
  Age: 70 Year
  Sex: Female

DRUGS (1)
  1. AMOXICILLIN SODIUM+POTASSIUM CLAVULANATE [Suspect]
     Active Substance: AMOXICILLIN\CLAVULANATE POTASSIUM
     Indication: LUNG INFECTION
     Dosage: 125 MG
     Route: 048
     Dates: start: 20160527, end: 20160602

REACTIONS (5)
  - Immunodeficiency [Unknown]
  - Thrombocytopenia [Unknown]
  - Vasodilatation [Unknown]
  - White blood cell count decreased [Unknown]
  - Feeling abnormal [Unknown]
